FAERS Safety Report 23727050 (Version 1)
Quarter: 2024Q2

REPORT INFORMATION
  Report Type: Spontaneous
  Country: US (occurrence: US)
  Receive Date: 20240410
  Receipt Date: 20240410
  Transmission Date: 20240715
  Serious: No
  Sender: FDA-Public Use
  Company Number: US-SA-2024SA106194

PATIENT
  Age: 7 Year
  Sex: Male

DRUGS (2)
  1. ELOCTATE [Suspect]
     Active Substance: EFMOROCTOCOG ALFA
     Dosage: 570 U
     Route: 042
  2. ELOCTATE [Suspect]
     Active Substance: EFMOROCTOCOG ALFA
     Dosage: 570 U
     Route: 042

REACTIONS (1)
  - Spontaneous haemorrhage [Unknown]

NARRATIVE: CASE EVENT DATE: 20240331
